FAERS Safety Report 5810884-8 (Version None)
Quarter: 2008Q3

REPORT INFORMATION
  Report Type: 
  Country: None (occurrence: None)
  Receive Date: 20080716
  Receipt Date: 20080701
  Transmission Date: 20090109
  Serious: Yes (Hospitalization)
  Sender: FDA-Public Use
  Company Number: PHHO2008ES08534

PATIENT
  Sex: Male

DRUGS (3)
  1. TACROLIMUS COMP-TAC+ [Suspect]
     Indication: RENAL TRANSPLANT
     Dosage: UNK
  2. MYFORTIC [Suspect]
     Indication: RENAL TRANSPLANT
  3. PREDNISOLONE [Suspect]

REACTIONS (4)
  - ANGINA PECTORIS [None]
  - CARDIAC FAILURE [None]
  - CARDIAC OPERATION [None]
  - CARDIAC VALVE DISEASE [None]
